FAERS Safety Report 7215224-8 (Version None)
Quarter: 2011Q1

REPORT INFORMATION
  Report Type: 
  Country: None (occurrence: None)
  Receive Date: 20110107
  Receipt Date: 20101208
  Transmission Date: 20110831
  Serious: No
  Sender: FDA-Public Use
  Company Number: A0891392A

PATIENT
  Sex: Male
  Weight: 131.8 kg

DRUGS (1)
  1. LOVAZA [Suspect]
     Dosage: 4CAP PER DAY
     Route: 048

REACTIONS (2)
  - GOUT [None]
  - MALAISE [None]
